FAERS Safety Report 21641471 (Version 1)
Quarter: 2022Q4

REPORT INFORMATION
  Report Type: Spontaneous
  Country: US (occurrence: US)
  Receive Date: 20221125
  Receipt Date: 20221125
  Transmission Date: 20230113
  Serious: Yes (Death, Life-Threatening, Other)
  Sender: FDA-Public Use
  Company Number: US-AMGEN-USASP2022199827

PATIENT

DRUGS (2)
  1. BEVACIZUMAB [Suspect]
     Active Substance: BEVACIZUMAB
     Indication: Hepatocellular carcinoma
     Dosage: UNK
     Route: 065
  2. ATEZOLIZUMAB [Concomitant]
     Active Substance: ATEZOLIZUMAB

REACTIONS (34)
  - Death [Fatal]
  - Hepatocellular carcinoma [Fatal]
  - Rectal abscess [Unknown]
  - Decreased appetite [Unknown]
  - Diarrhoea [Unknown]
  - Hypertension [Unknown]
  - Stomatitis [Unknown]
  - Platelet count decreased [Unknown]
  - Palmar-plantar erythrodysaesthesia syndrome [Unknown]
  - Intestinal obstruction [Unknown]
  - Drug intolerance [Unknown]
  - Fatigue [Unknown]
  - Aspartate aminotransferase increased [Unknown]
  - Abdominal discomfort [Unknown]
  - Dyspepsia [Unknown]
  - Alanine aminotransferase increased [Unknown]
  - Weight decreased [Unknown]
  - Rash [Unknown]
  - Oedema peripheral [Unknown]
  - Constipation [Unknown]
  - Dyspnoea [Unknown]
  - Dry skin [Unknown]
  - Alopecia [Unknown]
  - Dysgeusia [Unknown]
  - Headache [Unknown]
  - Back pain [Unknown]
  - Insomnia [Unknown]
  - Flatulence [Unknown]
  - Confusional state [Unknown]
  - Blood bilirubin increased [Unknown]
  - Off label use [Unknown]
  - Anaemia [Unknown]
  - Fistula [Unknown]
  - Blood pressure increased [Unknown]
